FAERS Safety Report 19800876 (Version 1)
Quarter: 2021Q3

REPORT INFORMATION
  Report Type: Report from Study
  Country: US (occurrence: US)
  Receive Date: 20210908
  Receipt Date: 20210908
  Transmission Date: 20211014
  Serious: Yes (Hospitalization)
  Sender: FDA-Public Use
  Company Number: US-REGENERON PHARMACEUTICALS, INC.-2021-83053

PATIENT

DRUGS (5)
  1. DOXORUBICIN [Suspect]
     Active Substance: DOXORUBICIN
     Indication: BREAST CANCER
     Dosage: 60 MG/M2, Q2W
     Route: 042
     Dates: start: 20210809
  2. PACLITAXEL. [Suspect]
     Active Substance: PACLITAXEL
     Indication: BREAST CANCER
     Dosage: 80 MG/M2, WEEKLY
     Route: 042
     Dates: start: 20210503, end: 20210719
  3. CEMIPLIMAB [Suspect]
     Active Substance: CEMIPLIMAB
     Indication: BREAST CANCER
     Dosage: 350 MG, Q3W
     Route: 042
     Dates: start: 20210503, end: 20210706
  4. REGN3767 [Suspect]
     Active Substance: FIANLIMAB
     Indication: BREAST CANCER
     Dosage: 1600 MG, Q3W
     Route: 042
     Dates: start: 20210503, end: 20210706
  5. CYCLOPHOSPHAMIDE. [Suspect]
     Active Substance: CYCLOPHOSPHAMIDE
     Indication: BREAST CANCER
     Dosage: 600 MG/M2, Q2W
     Route: 042
     Dates: start: 20210809

REACTIONS (1)
  - Somnolence [Not Recovered/Not Resolved]

NARRATIVE: CASE EVENT DATE: 20210830
